FAERS Safety Report 19836804 (Version 1)
Quarter: 2021Q3

REPORT INFORMATION
  Report Type: Spontaneous
  Country: CA (occurrence: CA)
  Receive Date: 20210914
  Receipt Date: 20210914
  Transmission Date: 20211014
  Serious: Yes (Death, Life-Threatening, Disabling, Other)
  Sender: FDA-Public Use
  Company Number: CA-BAUSCH-BL-2021-031183

PATIENT
  Age: 59 Year
  Sex: Female
  Weight: 68 kg

DRUGS (92)
  1. APO?PREDNISONE [Suspect]
     Active Substance: PREDNISONE
     Indication: PRODUCT USED FOR UNKNOWN INDICATION
     Route: 048
  2. METHOTREXATE. [Suspect]
     Active Substance: METHOTREXATE
     Route: 048
  3. ORENCIA [Suspect]
     Active Substance: ABATACEPT
     Indication: RHEUMATOID ARTHRITIS
     Route: 042
  4. OTEZLA [Suspect]
     Active Substance: APREMILAST
     Indication: PRODUCT USED FOR UNKNOWN INDICATION
     Route: 048
  5. PHTHALYLSULFATHIAZOLE [Suspect]
     Active Substance: PHTHALYLSULFATHIAZOLE
     Indication: PRODUCT USED FOR UNKNOWN INDICATION
     Route: 065
  6. REACTINE COMPLETE [Suspect]
     Active Substance: CETIRIZINE HYDROCHLORIDE\PSEUDOEPHEDRINE HYDROCHLORIDE
     Indication: RHEUMATOID ARTHRITIS
     Route: 067
  7. XELJANZ [Suspect]
     Active Substance: TOFACITINIB CITRATE
     Indication: RHEUMATOID ARTHRITIS
     Route: 065
  8. IBUPROFEN. [Concomitant]
     Active Substance: IBUPROFEN
     Indication: PRODUCT USED FOR UNKNOWN INDICATION
  9. LISINOPRIL. [Concomitant]
     Active Substance: LISINOPRIL
     Indication: PRODUCT USED FOR UNKNOWN INDICATION
  10. ARAVA [Suspect]
     Active Substance: LEFLUNOMIDE
     Indication: RHEUMATOID ARTHRITIS
     Route: 048
  11. KEVZARA [Suspect]
     Active Substance: SARILUMAB
     Indication: RHEUMATOID ARTHRITIS
     Route: 065
  12. OTEZLA [Suspect]
     Active Substance: APREMILAST
     Route: 048
  13. STELARA [Suspect]
     Active Substance: USTEKINUMAB
     Indication: RHEUMATOID ARTHRITIS
     Route: 058
  14. XELJANZ [Suspect]
     Active Substance: TOFACITINIB CITRATE
     Route: 048
  15. DICLOFENAC POTASSIUM. [Concomitant]
     Active Substance: DICLOFENAC POTASSIUM
     Indication: PRODUCT USED FOR UNKNOWN INDICATION
  16. SALAZOPYRIN [Concomitant]
     Active Substance: SULFASALAZINE
     Indication: RHEUMATOID ARTHRITIS
     Route: 048
  17. VITAMIN D3 [Concomitant]
     Active Substance: CHOLECALCIFEROL
     Indication: PRODUCT USED FOR UNKNOWN INDICATION
  18. HYDROCORTISONE ACETATE. [Suspect]
     Active Substance: HYDROCORTISONE ACETATE
     Indication: PRODUCT USED FOR UNKNOWN INDICATION
     Route: 048
  19. CORTISONE ACETATE. [Suspect]
     Active Substance: CORTISONE ACETATE
     Route: 048
  20. ACETAMINOPHEN. [Suspect]
     Active Substance: ACETAMINOPHEN
     Indication: PRODUCT USED FOR UNKNOWN INDICATION
     Route: 065
  21. ALENDRONIC ACID [Suspect]
     Active Substance: ALENDRONIC ACID
     Indication: PRODUCT USED FOR UNKNOWN INDICATION
     Route: 065
  22. FOLIC ACID. [Suspect]
     Active Substance: FOLIC ACID
     Route: 065
  23. HUMIRA [Suspect]
     Active Substance: ADALIMUMAB
     Indication: RHEUMATOID ARTHRITIS
     Route: 058
  24. LEFLUNOMIDE. [Suspect]
     Active Substance: LEFLUNOMIDE
     Indication: RHEUMATOID ARTHRITIS
     Route: 065
  25. METHOTREXATE. [Suspect]
     Active Substance: METHOTREXATE
     Route: 065
  26. METHOTREXATE. [Suspect]
     Active Substance: METHOTREXATE
     Route: 013
  27. REMICADE [Suspect]
     Active Substance: INFLIXIMAB
     Indication: COLITIS ULCERATIVE
     Route: 042
  28. RITUXIMAB. [Suspect]
     Active Substance: RITUXIMAB
     Indication: RHEUMATOID ARTHRITIS
     Route: 042
  29. RITUXIMAB. [Suspect]
     Active Substance: RITUXIMAB
     Route: 041
  30. SIMPONI [Suspect]
     Active Substance: GOLIMUMAB
     Indication: RHEUMATOID ARTHRITIS
     Route: 058
  31. SOLU?MEDROL [Suspect]
     Active Substance: METHYLPREDNISOLONE SODIUM SUCCINATE
     Indication: PRODUCT USED FOR UNKNOWN INDICATION
     Route: 065
  32. DICLOFENAC SODIUM. [Suspect]
     Active Substance: DICLOFENAC SODIUM
     Indication: PRODUCT USED FOR UNKNOWN INDICATION
     Route: 065
  33. CORTISONE ACETATE. [Suspect]
     Active Substance: CORTISONE ACETATE
     Indication: RHEUMATOID ARTHRITIS
     Route: 065
  34. DESOXIMETASONE. [Suspect]
     Active Substance: DESOXIMETASONE
     Route: 003
  35. ACTEMRA [Suspect]
     Active Substance: TOCILIZUMAB
     Indication: RHEUMATOID ARTHRITIS
     Route: 042
  36. CALCIUM CARBONATE. [Suspect]
     Active Substance: CALCIUM CARBONATE
     Indication: PRODUCT USED FOR UNKNOWN INDICATION
     Route: 065
  37. CETIRIZINE HYDROCHLORIDE. [Suspect]
     Active Substance: CETIRIZINE HYDROCHLORIDE
     Indication: RHEUMATOID ARTHRITIS
     Route: 065
  38. COSENTYX [Suspect]
     Active Substance: SECUKINUMAB
     Indication: PRODUCT USED FOR UNKNOWN INDICATION
     Route: 065
  39. FOLIC ACID. [Suspect]
     Active Substance: FOLIC ACID
     Indication: RHEUMATOID ARTHRITIS
     Route: 065
  40. HYDROXYCHLOROQUINE SULFATE. [Suspect]
     Active Substance: HYDROXYCHLOROQUINE SULFATE
     Route: 048
  41. PREDNISONE. [Suspect]
     Active Substance: PREDNISONE
     Indication: PRODUCT USED FOR UNKNOWN INDICATION
     Route: 048
  42. SULFASALAZINE. [Suspect]
     Active Substance: SULFASALAZINE
     Indication: RHEUMATOID ARTHRITIS
     Route: 048
  43. DESOXIMETASONE. [Suspect]
     Active Substance: DESOXIMETASONE
     Route: 048
  44. ALENDRONATE SODIUM. [Suspect]
     Active Substance: ALENDRONATE SODIUM
     Route: 065
  45. CETIRIZINE HYDROCHLORIDE. [Suspect]
     Active Substance: CETIRIZINE HYDROCHLORIDE
     Indication: OFF LABEL USE
     Route: 065
  46. CIMZIA [Suspect]
     Active Substance: CERTOLIZUMAB PEGOL
     Route: 058
  47. FOLIC ACID. [Suspect]
     Active Substance: FOLIC ACID
     Route: 065
  48. HYDROXYCHLOROQUINE SULFATE. [Suspect]
     Active Substance: HYDROXYCHLOROQUINE SULFATE
     Indication: PRODUCT USED FOR UNKNOWN INDICATION
     Route: 065
  49. ORENCIA [Suspect]
     Active Substance: ABATACEPT
     Route: 058
  50. PREDNISONE. [Suspect]
     Active Substance: PREDNISONE
     Route: 065
  51. SIMPONI [Suspect]
     Active Substance: GOLIMUMAB
     Route: 058
  52. TOCILIZUMAB. [Suspect]
     Active Substance: TOCILIZUMAB
     Indication: RHEUMATOID ARTHRITIS
     Route: 065
  53. VITAMIN C [Suspect]
     Active Substance: ASCORBIC ACID
     Indication: PRODUCT USED FOR UNKNOWN INDICATION
     Route: 065
  54. ALENDRONATE SODIUM. [Suspect]
     Active Substance: ALENDRONATE SODIUM
     Indication: RHEUMATOID ARTHRITIS
     Route: 048
  55. ARAVA [Suspect]
     Active Substance: LEFLUNOMIDE
     Route: 048
  56. CALCIUM GLUBIONATE [Suspect]
     Active Substance: CALCIUM GLUBIONATE
     Indication: PRODUCT USED FOR UNKNOWN INDICATION
     Route: 065
  57. CERTOLIZUMAB PEGOL [Suspect]
     Active Substance: CERTOLIZUMAB PEGOL
     Indication: PRODUCT USED FOR UNKNOWN INDICATION
     Route: 065
  58. CIMZIA [Suspect]
     Active Substance: CERTOLIZUMAB PEGOL
     Indication: RHEUMATOID ARTHRITIS
     Route: 058
  59. ERELZI [Suspect]
     Active Substance: ETANERCEPT-SZZS
     Indication: RHEUMATOID ARTHRITIS
     Route: 058
  60. FOLIC ACID. [Suspect]
     Active Substance: FOLIC ACID
     Route: 065
  61. FOSAMAX [Suspect]
     Active Substance: ALENDRONATE SODIUM
     Route: 065
  62. HUMIRA [Suspect]
     Active Substance: ADALIMUMAB
     Route: 058
  63. HYDROXYCHLOROQUINE [Suspect]
     Active Substance: HYDROXYCHLOROQUINE
     Indication: RHEUMATOID ARTHRITIS
     Route: 065
  64. PREDNISONE. [Suspect]
     Active Substance: PREDNISONE
     Route: 048
  65. TOFACITINIB CITRATE [Concomitant]
     Active Substance: TOFACITINIB CITRATE
     Indication: PRODUCT USED FOR UNKNOWN INDICATION
     Route: 048
  66. CORTISONE ACETATE. [Suspect]
     Active Substance: CORTISONE ACETATE
     Route: 065
  67. CORTISONE ACETATE. [Suspect]
     Active Substance: CORTISONE ACETATE
     Route: 061
  68. DESOXIMETASONE. [Suspect]
     Active Substance: DESOXIMETASONE
     Indication: RHEUMATOID ARTHRITIS
     Route: 061
  69. ENBREL [Suspect]
     Active Substance: ETANERCEPT
     Indication: RHEUMATOID ARTHRITIS
     Route: 058
  70. FOLIC ACID. [Suspect]
     Active Substance: FOLIC ACID
     Route: 065
  71. FOLIC ACID. [Suspect]
     Active Substance: FOLIC ACID
     Route: 065
  72. METHOTREXATE. [Suspect]
     Active Substance: METHOTREXATE
     Indication: RHEUMATOID ARTHRITIS
     Route: 065
  73. METHOTREXATE. [Suspect]
     Active Substance: METHOTREXATE
     Route: 058
  74. PSEUDOEPHEDRINE HYDROCHLORIDE. [Suspect]
     Active Substance: PSEUDOEPHEDRINE HYDROCHLORIDE
     Indication: RHEUMATOID ARTHRITIS
     Route: 048
  75. RITUXIMAB. [Suspect]
     Active Substance: RITUXIMAB
     Route: 058
  76. TOCILIZUMAB. [Suspect]
     Active Substance: TOCILIZUMAB
     Route: 058
  77. XELJANZ [Suspect]
     Active Substance: TOFACITINIB CITRATE
     Route: 065
  78. CODEINE [Concomitant]
     Active Substance: CODEINE
     Indication: PRODUCT USED FOR UNKNOWN INDICATION
     Route: 065
  79. DICLOFENAC [Suspect]
     Active Substance: DICLOFENAC
     Indication: PRODUCT USED FOR UNKNOWN INDICATION
     Route: 065
  80. DESOXIMETASONE. [Suspect]
     Active Substance: DESOXIMETASONE
     Route: 067
  81. ADALIMUMAB [Suspect]
     Active Substance: ADALIMUMAB
     Indication: RHEUMATOID ARTHRITIS
     Route: 058
  82. DIPHENHYDRAMINE HYDROCHLORIDE. [Suspect]
     Active Substance: DIPHENHYDRAMINE HYDROCHLORIDE
     Indication: PRODUCT USED FOR UNKNOWN INDICATION
     Route: 065
  83. FOSAMAX [Suspect]
     Active Substance: ALENDRONATE SODIUM
     Indication: RHEUMATOID ARTHRITIS
     Route: 048
  84. GOLIMUMAB [Suspect]
     Active Substance: GOLIMUMAB
     Indication: PRODUCT USED FOR UNKNOWN INDICATION
     Route: 065
  85. HYDROXYCHLOROQUINE [Suspect]
     Active Substance: HYDROXYCHLOROQUINE
     Route: 065
  86. PREDNISONE. [Suspect]
     Active Substance: PREDNISONE
     Route: 065
  87. REMICADE [Suspect]
     Active Substance: INFLIXIMAB
     Indication: RHEUMATOID ARTHRITIS
     Route: 042
  88. REMICADE [Suspect]
     Active Substance: INFLIXIMAB
     Route: 065
  89. SULFASALAZINE. [Suspect]
     Active Substance: SULFASALAZINE
     Route: 048
  90. SULFASALAZINE. [Suspect]
     Active Substance: SULFASALAZINE
     Route: 058
  91. WINPRED [Suspect]
     Active Substance: PREDNISONE
     Indication: RHEUMATOID ARTHRITIS
     Route: 048
  92. CAFFEINE CITRATE. [Concomitant]
     Active Substance: CAFFEINE CITRATE
     Indication: PRODUCT USED FOR UNKNOWN INDICATION

REACTIONS (59)
  - Discomfort [Fatal]
  - Drug intolerance [Fatal]
  - Glossodynia [Fatal]
  - Rheumatoid factor positive [Fatal]
  - Hypersensitivity [Fatal]
  - Hypertension [Fatal]
  - Rash [Fatal]
  - Pericarditis [Fatal]
  - Infusion related reaction [Fatal]
  - Mobility decreased [Fatal]
  - Pain [Fatal]
  - Synovitis [Fatal]
  - Liver injury [Fatal]
  - Hepatic enzyme increased [Fatal]
  - Intentional product use issue [Fatal]
  - Product use issue [Fatal]
  - Rheumatoid arthritis [Fatal]
  - Adverse drug reaction [Fatal]
  - Adverse event [Fatal]
  - Anti-cyclic citrullinated peptide antibody positive [Fatal]
  - Malaise [Fatal]
  - Drug ineffective [Fatal]
  - Pemphigus [Fatal]
  - Anti-cyclic citrullinated peptide antibody [Fatal]
  - Decreased appetite [Fatal]
  - Hip arthroplasty [Fatal]
  - Hypercholesterolaemia [Fatal]
  - Joint swelling [Fatal]
  - Musculoskeletal stiffness [Fatal]
  - Exposure during pregnancy [Fatal]
  - Therapeutic product effect decreased [Fatal]
  - Helicobacter infection [Fatal]
  - Abdominal discomfort [Fatal]
  - Fibromyalgia [Fatal]
  - General physical health deterioration [Fatal]
  - Treatment failure [Fatal]
  - Psoriatic arthropathy [Fatal]
  - Rheumatic fever [Fatal]
  - Type 2 diabetes mellitus [Fatal]
  - Arthropathy [Fatal]
  - Hypoaesthesia [Fatal]
  - Injury [Fatal]
  - Swelling [Fatal]
  - Fatigue [Fatal]
  - Product use in unapproved indication [Fatal]
  - Off label use [Fatal]
  - Systemic lupus erythematosus [Fatal]
  - Arthralgia [Fatal]
  - Blood cholesterol increased [Fatal]
  - Condition aggravated [Fatal]
  - Wound [Fatal]
  - Headache [Fatal]
  - Alopecia [Fatal]
  - Blister [Fatal]
  - Duodenal ulcer perforation [Fatal]
  - Hand deformity [Fatal]
  - Knee arthroplasty [Fatal]
  - Diarrhoea [Fatal]
  - Contraindicated product administered [Fatal]
